FAERS Safety Report 5881516-8 (Version None)
Quarter: 2008Q3

REPORT INFORMATION
  Report Type: 
  Country: None (occurrence: None)
  Receive Date: 20080911
  Receipt Date: 20080908
  Transmission Date: 20090109
  Serious: Yes (Death, Hospitalization, Other)
  Sender: FDA-Public Use
  Company Number: CLOF-1000271

PATIENT
  Sex: Female
  Weight: 53.6 kg

DRUGS (19)
  1. CLOFARABINE (CLOFARABINE) SOLUTION FOR INFUSION [Suspect]
     Indication: ACUTE LYMPHOCYTIC LEUKAEMIA
     Dosage: MG, INTRAVENOUS
     Route: 042
     Dates: start: 20080729, end: 20080802
  2. CYTARABINE [Suspect]
     Indication: ACUTE LYMPHOCYTIC LEUKAEMIA
     Dosage: INTRAVENOUS
     Route: 042
     Dates: start: 20080729, end: 20080802
  3. ACYCLOVIR (ACICLOVIR) UNKNOWN [Concomitant]
  4. ALLOPURINOL [Concomitant]
  5. AMPHOTERICIAN B (AMPHOTERICIN B) UNKNOWN [Concomitant]
  6. CALCIUM (CALCIUM) UNKNOWN [Concomitant]
  7. CIPROFLOXACIN [Concomitant]
  8. ESOMEPRAZOLE (ESOMEPRAZOLE) UNKNOWN [Concomitant]
  9. FLUCONAZOLE [Concomitant]
  10. KADIAN (MORPHINE SULFATE) UNKNOWN [Concomitant]
  11. LACTULOSE [Concomitant]
  12. MAGNESIUM OXIDE (MAGNESIUM OXIDE) UNKNOWN [Concomitant]
  13. MEROPENEM (MEROPENEM) UNKNOWN [Concomitant]
  14. MICAFUNGIN (MICAFUNGIN) UNKNOWN [Concomitant]
  15. MORPHINE [Concomitant]
  16. NEULASTA (PEGFILGRASTIM) UNKNOWN [Concomitant]
  17. PREDNISONE (PREDNISONE) UNKNOWN [Concomitant]
  18. RISPERIDONE [Concomitant]
  19. ZOFRAN [Concomitant]

REACTIONS (8)
  - AGITATION [None]
  - BLOOD PRESSURE DECREASED [None]
  - CONFUSIONAL STATE [None]
  - DYSPNOEA [None]
  - FATIGUE [None]
  - FEBRILE NEUTROPENIA [None]
  - HYPERBILIRUBINAEMIA [None]
  - LUNG INFILTRATION [None]
